FAERS Safety Report 4673588-3 (Version None)
Quarter: 2005Q2

REPORT INFORMATION
  Report Type: 
  Country: None (occurrence: None)
  Receive Date: 20050525
  Receipt Date: 19970726
  Transmission Date: 20051028
  Serious: Yes (Hospitalization, Other)
  Sender: FDA-Public Use
  Company Number: PHBS1997BR06309

PATIENT
  Age: 63 Year
  Sex: Male
  Weight: 80 kg

DRUGS (1)
  1. DIOVAN [Suspect]
     Indication: HYPERTENSION
     Dosage: 1 CAPSULE DAILY
     Route: 048
     Dates: start: 19970610

REACTIONS (3)
  - ARRHYTHMIA [None]
  - DRUG INEFFECTIVE [None]
  - VENTRICULAR EXTRASYSTOLES [None]
